FAERS Safety Report 20036679 (Version 2)
Quarter: 2021Q4

REPORT INFORMATION
  Report Type: Spontaneous
  Country: US (occurrence: US)
  Receive Date: 20211105
  Receipt Date: 20211129
  Transmission Date: 20220303
  Serious: Yes (Other)
  Sender: FDA-Public Use
  Company Number: US-BAYER-2021A238154

PATIENT
  Age: 41 Year
  Sex: Female

DRUGS (1)
  1. MIRENA [Suspect]
     Active Substance: LEVONORGESTREL
     Dosage: 20?G/DAY
     Route: 015
     Dates: start: 20211014

REACTIONS (5)
  - Genital haemorrhage [Not Recovered/Not Resolved]
  - Medical device pain [None]
  - Abdominal pain [None]
  - Mood swings [None]
  - Gait inability [None]

NARRATIVE: CASE EVENT DATE: 20211014
